FAERS Safety Report 25983741 (Version 1)
Quarter: 2025Q4

REPORT INFORMATION
  Report Type: Spontaneous
  Country: US (occurrence: US)
  Receive Date: 20251031
  Receipt Date: 20251031
  Transmission Date: 20260118
  Serious: No
  Sender: ROCHE
  Company Number: US-ROCHE-10000423515

PATIENT
  Sex: Male

DRUGS (2)
  1. OCREVUS [Suspect]
     Active Substance: OCRELIZUMAB
     Indication: Multiple sclerosis
     Dosage: FORM STRENGTH: 300 MG/10 ML
     Route: 042
     Dates: start: 201907
  2. GABAPENTIN [Concomitant]
     Active Substance: GABAPENTIN

REACTIONS (4)
  - Neuralgia [Unknown]
  - Neck pain [Unknown]
  - Magnetic resonance imaging abnormal [Unknown]
  - Hypoaesthesia [Unknown]
